FAERS Safety Report 18369163 (Version 1)
Quarter: 2020Q4

REPORT INFORMATION
  Report Type: Spontaneous
  Country: CN (occurrence: CN)
  Receive Date: 20201011
  Receipt Date: 20201011
  Transmission Date: 20210114
  Serious: Yes (Other)
  Sender: FDA-Public Use
  Company Number: CN-B.I. PHARMACEUTICALS,INC./RIDGEFIELD-2020-BI-052680

PATIENT
  Age: 66 Year
  Sex: Female
  Weight: 65 kg

DRUGS (2)
  1. RABEPRAZOLE [Concomitant]
     Active Substance: RABEPRAZOLE
     Indication: HAEMORRHAGE PROPHYLAXIS
     Route: 065
  2. PRADAXA [Suspect]
     Active Substance: DABIGATRAN ETEXILATE MESYLATE
     Indication: ANTICOAGULANT THERAPY
     Route: 065

REACTIONS (2)
  - Device related thrombosis [Recovered/Resolved]
  - Drug ineffective [Unknown]
